FAERS Safety Report 8915306 (Version 2)
Quarter: 2013Q1

REPORT INFORMATION
  Report Type: Spontaneous
  Country: CA (occurrence: CA)
  Receive Date: 20121119
  Receipt Date: 20130116
  Transmission Date: 20140127
  Serious: Yes (Death, Hospitalization, Other)
  Sender: FDA-Public Use
  Company Number: CA-ROCHE-1155900

PATIENT
  Age: 53 Year
  Sex: Female

DRUGS (2)
  1. XOLAIR [Suspect]
     Indication: ASTHMA
     Route: 058
     Dates: start: 20121018
  2. XOLAIR [Suspect]
     Route: 065
     Dates: start: 20121026, end: 20121228

REACTIONS (3)
  - Death [Fatal]
  - Lung disorder [Unknown]
  - Lung neoplasm malignant [Unknown]
